FAERS Safety Report 6105494-1 (Version None)
Quarter: 2009Q1

REPORT INFORMATION
  Report Type: 
  Country: None (occurrence: None)
  Receive Date: 20090306
  Receipt Date: 20090227
  Transmission Date: 20090719
  Serious: Yes (Other)
  Sender: FDA-Public Use
  Company Number: A0771645A

PATIENT
  Age: 59 Year
  Sex: Male
  Weight: 102.3 kg

DRUGS (13)
  1. AVANDIA [Suspect]
     Indication: DIABETES MELLITUS
     Dosage: 4MG TWICE PER DAY
     Route: 048
     Dates: start: 20020101, end: 20070501
  2. AVANDAMET [Suspect]
     Indication: DIABETES MELLITUS
     Route: 048
     Dates: start: 20050210, end: 20050404
  3. GLUCOPHAGE [Concomitant]
  4. METFORMIN [Concomitant]
  5. STARLIX [Concomitant]
  6. LIPITOR [Concomitant]
  7. ZOCOR [Concomitant]
  8. ADVAIR HFA [Concomitant]
  9. FOSINOPRIL [Concomitant]
  10. NIASPAN [Concomitant]
  11. BENICAR [Concomitant]
  12. TRAMADOL HCL [Concomitant]
  13. ACETAMINOPHEN [Concomitant]

REACTIONS (1)
  - MYOCARDIAL INFARCTION [None]
